FAERS Safety Report 9859332 (Version 1)
Quarter: 2014Q1

REPORT INFORMATION
  Report Type: Report from Study
  Country: US (occurrence: US)
  Receive Date: 20140131
  Receipt Date: 20140131
  Transmission Date: 20141002
  Serious: Yes (Hospitalization, Other)
  Sender: FDA-Public Use
  Company Number: US-PFIZER INC-2014025861

PATIENT
  Age: 62 Year
  Sex: Male

DRUGS (3)
  1. FLUOROURACIL [Suspect]
     Indication: ADENOCARCINOMA OF COLON
     Dosage: 18 MG/KG, 1X/DAY
     Route: 040
  2. HPP [Concomitant]
     Indication: ADENOCARCINOMA OF COLON
     Dosage: 300 MG EVERY 8 HOURS
     Route: 048
  3. HPP [Concomitant]
     Indication: METASTASES TO LIVER

REACTIONS (1)
  - Neurotoxicity [Recovered/Resolved]
